FAERS Safety Report 4899300-0 (Version None)
Quarter: 2006Q1

REPORT INFORMATION
  Report Type: 
  Country: None (occurrence: None)
  Receive Date: 20060131
  Receipt Date: 20060117
  Transmission Date: 20060701
  Serious: Yes (Hospitalization, Other)
  Sender: FDA-Public Use
  Company Number: 2002059739

PATIENT
  Age: 34 Year
  Sex: Male

DRUGS (9)
  1. ATORVASTATIN CALCIUM [Suspect]
     Indication: HYPERLIPIDAEMIA
     Dosage: 40 MG (1 IN 1 D), ORAL
     Route: 048
     Dates: start: 20010601
  2. KALETRA [Suspect]
     Indication: HIV TEST POSITIVE
     Dosage: ORAL
     Route: 048
     Dates: start: 20010901
  3. CLARITHROMYCIN [Suspect]
     Indication: PNEUMONIA
     Dosage: 1000 MG (2 IN 2 D), ORAL
     Route: 048
     Dates: start: 20020901
  4. LAMIVUDINE [Concomitant]
  5. EFAVIRENZ [Concomitant]
  6. RITONAVIR (RITONAVIR) [Concomitant]
  7. SAQUINAVIR [Concomitant]
  8. CEFUROXIME [Concomitant]
  9. SODIUM BICARBONATE IN PLASTIC CONTAINER [Concomitant]

REACTIONS (8)
  - ALANINE AMINOTRANSFERASE INCREASED [None]
  - DRUG INTERACTION [None]
  - DRUG LEVEL INCREASED [None]
  - HYPOKINESIA [None]
  - MOTOR DYSFUNCTION [None]
  - PNEUMONIA [None]
  - RHABDOMYOLYSIS [None]
  - SENSORY DISTURBANCE [None]
